FAERS Safety Report 9116396 (Version 2)
Quarter: 2013Q3

REPORT INFORMATION
  Report Type: Spontaneous
  Country: US (occurrence: US)
  Receive Date: 20130225
  Receipt Date: 20130709
  Transmission Date: 20140515
  Serious: Yes (Other)
  Sender: FDA-Public Use
  Company Number: US-PFIZER INC-2013063850

PATIENT
  Age: 5 Year
  Sex: Male
  Weight: 29.93 kg

DRUGS (1)
  1. XYNTHA [Suspect]
     Indication: FACTOR VIII DEFICIENCY
     Dosage: 25 IU/KG, UNK

REACTIONS (3)
  - Haemorrhage [Unknown]
  - Joint injury [Unknown]
  - Disease complication [Unknown]
